FAERS Safety Report 22204678 (Version 1)
Quarter: 2023Q2

REPORT INFORMATION
  Report Type: Spontaneous
  Country: FR (occurrence: FR)
  Receive Date: 20230413
  Receipt Date: 20230413
  Transmission Date: 20230721
  Serious: Yes (Hospitalization, Other)
  Sender: FDA-Public Use
  Company Number: FR-AFSSAPS-MP2023000713

PATIENT
  Age: 48 Year
  Sex: Male

DRUGS (11)
  1. PREDNISOLONE [Suspect]
     Active Substance: PREDNISOLONE
     Indication: Langerhans cell sarcoma
     Dosage: 80 MILLIGRAM, ONCE A DAY
     Route: 048
     Dates: start: 20230112, end: 20230301
  2. PURINETHOL [Suspect]
     Active Substance: MERCAPTOPURINE
     Indication: Langerhans cell sarcoma
     Dosage: 100 MILLIGRAM
     Route: 048
     Dates: start: 20230303, end: 20230306
  3. VINBLASTINE [Suspect]
     Active Substance: VINBLASTINE
     Indication: Langerhans cell sarcoma
     Dosage: 12 MILLIGRAM (6 MG/M2)
     Route: 042
     Dates: start: 20230110, end: 20230110
  4. VINBLASTINE [Suspect]
     Active Substance: VINBLASTINE
     Dosage: 12 MILLIGRAM (6 MG/M2)
     Route: 042
     Dates: start: 20230201, end: 20230201
  5. VINBLASTINE [Suspect]
     Active Substance: VINBLASTINE
     Dosage: 12 MILLIGRAM (6 MG/M2)
     Route: 042
     Dates: start: 20230208, end: 20230208
  6. VINBLASTINE [Suspect]
     Active Substance: VINBLASTINE
     Dosage: 12 MILLIGRAM (6 MG/M2)
     Route: 042
     Dates: start: 20230222, end: 20230222
  7. VINBLASTINE [Suspect]
     Active Substance: VINBLASTINE
     Dosage: 12 MILLIGRAM (6 MG/M2)
     Route: 042
     Dates: start: 20230215, end: 20230215
  8. VINBLASTINE [Suspect]
     Active Substance: VINBLASTINE
     Dosage: 12 MILLIGRAM (6 MG/M2)
     Route: 042
     Dates: start: 20230118, end: 20230118
  9. VINBLASTINE [Suspect]
     Active Substance: VINBLASTINE
     Dosage: 12 MILLIGRAM (6 MG/M2)
     Route: 042
     Dates: start: 20230125, end: 20230125
  10. PERINDOPRIL [Concomitant]
     Active Substance: PERINDOPRIL
     Indication: Product used for unknown indication
     Dosage: 2 MILLIGRAM, ONCE A DAY
     Route: 048
  11. PANTOPRAZOLE [Concomitant]
     Active Substance: PANTOPRAZOLE
     Indication: Product used for unknown indication
     Dosage: 40 MILLIGRAM, ONCE A DAY
     Route: 048

REACTIONS (2)
  - Enterocolitis [Recovering/Resolving]
  - Diarrhoea [Recovering/Resolving]

NARRATIVE: CASE EVENT DATE: 20230212
